FAERS Safety Report 6607822-7 (Version None)
Quarter: 2010Q1

REPORT INFORMATION
  Report Type: 
  Country: None (occurrence: None)
  Receive Date: 20100301
  Receipt Date: 20100224
  Transmission Date: 20100710
  Serious: Yes (Other)
  Sender: FDA-Public Use
  Company Number: US-RB-003290-10

PATIENT
  Age: 51 Year
  Sex: Male

DRUGS (4)
  1. SUBOXONE [Suspect]
     Route: 060
     Dates: start: 20091101, end: 20091101
  2. SUBOXONE [Suspect]
     Route: 060
     Dates: start: 20091101, end: 20100101
  3. SUBOXONE [Suspect]
     Dosage: VARIOUS DOSES
     Route: 060
     Dates: start: 20100101
  4. XANAX [Concomitant]
     Indication: DEPRESSION
     Dosage: DOSING DETAIL UNKNOWN
     Route: 065

REACTIONS (2)
  - DEPRESSION [None]
  - SUICIDAL IDEATION [None]
